FAERS Safety Report 8840245 (Version 2)
Quarter: 2012Q4

REPORT INFORMATION
  Report Type: 
  Country: CA (occurrence: CA)
  Receive Date: 20121015
  Receipt Date: 20121214
  Transmission Date: 20130627
  Serious: Yes (Other)
  Sender: FDA-Public Use
  Company Number: CA-GLAXOSMITHKLINE-A0976191A

PATIENT
  Age: 51 Year
  Sex: Female

DRUGS (6)
  1. TYKERB [Suspect]
     Indication: BREAST CANCER METASTATIC
     Dosage: 1250MG Per day
     Route: 048
     Dates: start: 20120201, end: 20120927
  2. XELODA [Suspect]
     Route: 065
     Dates: end: 20120927
  3. PROCHLORPERAZINE [Suspect]
     Indication: PRODUCT USED FOR UNKNOWN INDICATION
     Route: 065
  4. PANTOLOC [Concomitant]
     Dosage: 40MG Per day
  5. ENALAPRIL [Concomitant]
     Dosage: 5MG Twice per day
  6. ATENOLOL [Concomitant]
     Dosage: 25MG Per day

REACTIONS (8)
  - Ejection fraction abnormal [Not Recovered/Not Resolved]
  - Breast cancer metastatic [Not Recovered/Not Resolved]
  - Metastases to central nervous system [Not Recovered/Not Resolved]
  - Nausea [Recovered/Resolved]
  - Somnolence [Unknown]
  - Weight decreased [Unknown]
  - Diarrhoea [Unknown]
  - Vomiting [Recovered/Resolved]
